FAERS Safety Report 5188310-4 (Version None)
Quarter: 2006Q4

REPORT INFORMATION
  Report Type: 
  Country: None (occurrence: None)
  Receive Date: 20061221
  Receipt Date: 20061214
  Transmission Date: 20070319
  Serious: Yes (Death, Hospitalization)
  Sender: FDA-Public Use
  Company Number: GB-ROCHE-475084

PATIENT
  Age: 74 Year
  Sex: Male
  Weight: 66.7 kg

DRUGS (9)
  1. CAPECITABINE [Suspect]
     Dosage: START DOSE AT PM, STOP DOSE AT AM. DOSE REPORTED AS 1500 BD.
     Route: 048
     Dates: start: 20041210, end: 20041215
  2. CAPECITABINE [Suspect]
     Route: 048
     Dates: start: 20051211, end: 20051215
  3. GEMCITABINE [Suspect]
     Route: 042
  4. GEMCITABINE [Suspect]
     Route: 042
     Dates: start: 20051211, end: 20051215
  5. HUMULIN R [Concomitant]
     Route: 058
     Dates: start: 20040815
  6. CREON [Concomitant]
     Dosage: TDD AS 8000 REPORTED.
     Route: 048
     Dates: start: 20040815
  7. METOCLOPRAMIDE [Concomitant]
     Route: 048
     Dates: start: 20040815
  8. ACETAMINOPHEN W/ CODEINE [Concomitant]
     Dosage: TDD REPORTED AS 30/500.
     Route: 048
     Dates: start: 20040815
  9. ATORVASTATIN [Concomitant]
     Route: 048

REACTIONS (5)
  - CONSTIPATION [None]
  - GASTROINTESTINAL HAEMORRHAGE [None]
  - GENERAL PHYSICAL HEALTH DETERIORATION [None]
  - HAEMATEMESIS [None]
  - VOMITING [None]
